FAERS Safety Report 9495142 (Version 1)
Quarter: 2013Q3

REPORT INFORMATION
  Report Type: Spontaneous
  Country: NL (occurrence: NL)
  Receive Date: 20130903
  Receipt Date: 20130903
  Transmission Date: 20140515
  Serious: Yes (Other)
  Sender: FDA-Public Use
  Company Number: NL-ACTELION-A-CH2013-87881

PATIENT
  Age: 71 Year
  Sex: Female
  Weight: 66 kg

DRUGS (6)
  1. TRACLEER [Suspect]
     Indication: PULMONARY ARTERIAL HYPERTENSION
     Dosage: 62.5 MG, BID
     Route: 048
     Dates: start: 20130513, end: 20130613
  2. TRACLEER [Suspect]
     Dosage: 125 MG, BID
     Route: 048
     Dates: start: 20130614, end: 20130821
  3. ACENOCUMAROL [Concomitant]
  4. FUROSEMIDE [Concomitant]
     Dosage: 40 MG, UNK
  5. SILDENAFIL [Concomitant]
     Dosage: 40 MG, UNK
  6. CALCIUMCARBONAT [Concomitant]

REACTIONS (2)
  - Ventilation perfusion mismatch [Recovered/Resolved with Sequelae]
  - Dyspnoea [Recovered/Resolved with Sequelae]
